FAERS Safety Report 5112873-8 (Version None)
Quarter: 2006Q3

REPORT INFORMATION
  Report Type: 
  Country: None (occurrence: None)
  Receive Date: 20060922
  Receipt Date: 20060825
  Transmission Date: 20061208
  Serious: Yes (Other)
  Sender: FDA-Public Use
  Company Number: PHBS2006JP13081

PATIENT
  Age: 69 Year
  Sex: Female

DRUGS (3)
  1. NEORAL [Suspect]
     Indication: MYASTHENIA GRAVIS
     Dosage: 250 MG/D
     Route: 048
     Dates: start: 20060823
  2. MYTELASE [Suspect]
     Indication: MYASTHENIA GRAVIS
     Dosage: 30 MG/D
     Route: 048
     Dates: start: 20060821
  3. PREDONINE [Concomitant]
     Indication: MYASTHENIA GRAVIS
     Dosage: 30 MG/D
     Route: 048
     Dates: start: 20060821

REACTIONS (3)
  - ANGINA PECTORIS [None]
  - BACK PAIN [None]
  - DIARRHOEA [None]
